FAERS Safety Report 8434352-2 (Version None)
Quarter: 2012Q2

REPORT INFORMATION
  Report Type: 
  Country: None (occurrence: None)
  Receive Date: 20120613
  Receipt Date: 20120612
  Transmission Date: 20120825
  Serious: Yes (Life-Threatening, Hospitalization)
  Sender: FDA-Public Use
  Company Number: CA-MERCK-1206USA01898

PATIENT
  Age: 59 Year
  Sex: Female
  Weight: 102 kg

DRUGS (16)
  1. RABEPRAZOLE SODIUM [Concomitant]
     Route: 065
  2. JANUVIA [Suspect]
     Route: 048
  3. BETAHISTINE [Concomitant]
     Route: 065
  4. CRESTOR [Concomitant]
     Route: 065
  5. QUININE [Concomitant]
     Route: 065
  6. HYDRODIURIL [Suspect]
     Route: 048
  7. METOPROLOL [Concomitant]
     Route: 065
  8. SYNTHROID [Concomitant]
     Route: 065
  9. GLICLAZIDE [Concomitant]
     Route: 065
  10. CYANOCOBALAMIN [Concomitant]
     Route: 065
  11. DICETEL [Concomitant]
     Route: 065
  12. FUROSEMIDE [Concomitant]
     Route: 065
  13. POTASSIUM (UNSPECIFIED) [Concomitant]
     Route: 065
  14. SPIRONOLACTONE [Concomitant]
     Route: 065
  15. ALLOPURINOL [Concomitant]
     Route: 065
  16. PLAVIX [Concomitant]
     Route: 065

REACTIONS (7)
  - SWOLLEN TONGUE [None]
  - ORAL DISCOMFORT [None]
  - AGEUSIA [None]
  - BLOOD POTASSIUM DECREASED [None]
  - ABDOMINAL DISCOMFORT [None]
  - ASTHENIA [None]
  - OESOPHAGEAL PAIN [None]
